FAERS Safety Report 5386064-X (Version None)
Quarter: 2007Q3

REPORT INFORMATION
  Report Type: 
  Country: None (occurrence: None)
  Receive Date: 20070710
  Receipt Date: 20070626
  Transmission Date: 20080115
  Serious: Yes (Other)
  Sender: FDA-Public Use
  Company Number: 07H-163-0312804-00

PATIENT
  Age: 19 Year
  Sex: Female

DRUGS (3)
  1. FENTANYL CITRATE [Suspect]
     Indication: ANALGESIC THERAPY
     Dosage: 20 MCG, INTRASPINAL
     Route: 037
  2. MORPHINE SULFATE INJ [Suspect]
     Indication: ANALGESIC THERAPY
     Dosage: 0.2 MG
  3. BUPIVACAINE IN DEXTROSE INJECTION (BUPIVACAINE HCL IN DEXTROSE INJECTI [Suspect]
     Indication: ANAESTHESIA
     Dosage: 12 MG, INTRASPINAL
     Route: 037

REACTIONS (3)
  - AREFLEXIA [None]
  - DYSPHAGIA [None]
  - HYPOTENSION [None]
